FAERS Safety Report 4914790-2 (Version None)
Quarter: 2006Q1

REPORT INFORMATION
  Report Type: 
  Country: None (occurrence: None)
  Receive Date: 20060113
  Receipt Date: 20051021
  Transmission Date: 20060701
  Serious: No
  Sender: FDA-Public Use
  Company Number: 2005SP003615

PATIENT
  Age: 45 Year
  Sex: Male
  Weight: 117.9352 kg

DRUGS (4)
  1. LUNESTA [Suspect]
     Indication: INSOMNIA
     Dosage: 2 MG; 1X ; ORAL
     Route: 048
     Dates: start: 20051020, end: 20051020
  2. TOPICAL PRODUCTS FOR JOINT AND MUSCULAR PAIN [Concomitant]
  3. PRINIVIL [Concomitant]
  4. CLARITIN [Concomitant]

REACTIONS (3)
  - DRUG INEFFECTIVE [None]
  - DYSGEUSIA [None]
  - INSOMNIA [None]
